FAERS Safety Report 23657731 (Version 1)
Quarter: 2024Q1

REPORT INFORMATION
  Report Type: Spontaneous
  Country: TR (occurrence: TR)
  Receive Date: 20240321
  Receipt Date: 20240321
  Transmission Date: 20240410
  Serious: Yes (Hospitalization, Other)
  Sender: FDA-Public Use
  Company Number: TR-AMGEN-TURSP2024055935

PATIENT

DRUGS (11)
  1. ADALIMUMAB [Suspect]
     Active Substance: ADALIMUMAB\ISOPROPYL ALCOHOL
     Indication: Rheumatic disorder
     Dosage: UNK
     Route: 065
  2. ETANERCEPT [Suspect]
     Active Substance: ETANERCEPT
     Indication: Rheumatic disorder
     Dosage: UNK
     Route: 065
  3. ANAKINRA [Suspect]
     Active Substance: ANAKINRA
     Indication: Rheumatic disorder
     Route: 065
  4. CANAKINUMAB [Suspect]
     Active Substance: CANAKINUMAB
     Indication: Rheumatic disorder
     Route: 065
  5. TOCILIZUMAB [Suspect]
     Active Substance: TOCILIZUMAB
     Indication: Rheumatic disorder
     Route: 065
  6. INFLIXIMAB [Suspect]
     Active Substance: INFLIXIMAB
     Indication: Rheumatic disorder
     Route: 065
  7. RITUXIMAB [Suspect]
     Active Substance: RITUXIMAB
     Indication: Rheumatic disorder
     Route: 065
  8. TOFACITINIB [Suspect]
     Active Substance: TOFACITINIB
     Indication: Rheumatic disorder
     Route: 065
  9. ABATACEPT [Suspect]
     Active Substance: ABATACEPT
     Indication: Rheumatic disorder
     Route: 065
  10. SECUKINUMAB [Suspect]
     Active Substance: SECUKINUMAB
     Indication: Rheumatic disorder
     Route: 065
  11. ISONIAZID [Concomitant]
     Active Substance: ISONIAZID
     Indication: Antibiotic prophylaxis

REACTIONS (44)
  - Idiopathic intracranial hypertension [Unknown]
  - Intracranial pressure increased [Unknown]
  - Gastrointestinal disorder [Unknown]
  - Laboratory test abnormal [Unknown]
  - Cataract [Unknown]
  - Thrombocytopenia [Unknown]
  - Infection [Unknown]
  - Uveitis [Unknown]
  - Neutropenia [Unknown]
  - Tuberculosis [Unknown]
  - Pneumonia [Unknown]
  - Skin disorder [Unknown]
  - Adverse event [Unknown]
  - Liver function test increased [Unknown]
  - Ear disorder [Unknown]
  - Nasal disorder [Unknown]
  - Eye disorder [Unknown]
  - Gingivitis [Unknown]
  - Presyncope [Unknown]
  - Visual acuity reduced [Unknown]
  - Epistaxis [Unknown]
  - Treatment noncompliance [Unknown]
  - Diarrhoea [Unknown]
  - Constipation [Unknown]
  - Dizziness [Unknown]
  - COVID-19 [Unknown]
  - Varicella [Unknown]
  - Gastroenteritis [Unknown]
  - Palpitations [Unknown]
  - Drug ineffective [Unknown]
  - Latent tuberculosis [Unknown]
  - Abdominal pain [Unknown]
  - Upper respiratory tract infection [Unknown]
  - Headache [Unknown]
  - Injection site reaction [Unknown]
  - Hypersensitivity [Unknown]
  - Rash [Unknown]
  - Paronychia [Unknown]
  - Vomiting [Unknown]
  - Nausea [Unknown]
  - Dyspnoea [Unknown]
  - Alopecia [Unknown]
  - Urticaria [Unknown]
  - Chest pain [Unknown]
